FAERS Safety Report 16577417 (Version 1)
Quarter: 2019Q3

REPORT INFORMATION
  Report Type: Spontaneous
  Country: FR (occurrence: FR)
  Receive Date: 20190716
  Receipt Date: 20190716
  Transmission Date: 20191004
  Serious: Yes (Hospitalization)
  Sender: FDA-Public Use
  Company Number: FR-ASTRAZENECA-2019SE99282

PATIENT
  Age: 78 Year
  Sex: Male

DRUGS (9)
  1. BRILIQUE [Suspect]
     Active Substance: TICAGRELOR
     Indication: ACUTE CORONARY SYNDROME
     Route: 048
     Dates: start: 20190529
  2. NORSET [Concomitant]
     Active Substance: MIRTAZAPINE
  3. PERINDOPRIL [Concomitant]
     Active Substance: PERINDOPRIL
  4. AMLOR [Concomitant]
     Active Substance: AMLODIPINE BESYLATE
  5. PIASCLEDINE [Concomitant]
     Active Substance: AVOCADO OIL\SOYBEAN OIL
  6. DEPAKOTE [Concomitant]
     Active Substance: DIVALPROEX SODIUM
  7. SERESTA [Concomitant]
     Active Substance: OXAZEPAM
  8. BISOPROLOL [Suspect]
     Active Substance: BISOPROLOL
     Indication: ACUTE CORONARY SYNDROME
     Route: 048
     Dates: start: 20190601, end: 20190605
  9. TRIMEBUTINE [Concomitant]
     Active Substance: TRIMEBUTINE

REACTIONS (2)
  - Atrioventricular block [Recovered/Resolved]
  - Cardiac arrest [Recovered/Resolved]

NARRATIVE: CASE EVENT DATE: 20190604
